FAERS Safety Report 8367864-0 (Version None)
Quarter: 2012Q1

REPORT INFORMATION
  Report Type: 
  Country: None (occurrence: None)
  Receive Date: 20120323
  Receipt Date: 20110829
  Transmission Date: 20120608
  Serious: Yes (Hospitalization)
  Sender: FDA-Public Use
  Company Number: 163-21880-11080108

PATIENT
  Age: 80 Year
  Sex: Female
  Weight: 63.05 kg

DRUGS (1)
  1. REVLIMID [Suspect]
     Indication: B-CELL LYMPHOMA
     Dosage: 10 MG, DAILY 21D OF 28 D, PO
     Route: 048
     Dates: start: 20110405, end: 20110726

REACTIONS (1)
  - DIVERTICULITIS [None]
